FAERS Safety Report 9556881 (Version 2)
Quarter: 2013Q3

REPORT INFORMATION
  Report Type: Spontaneous
  Country: CN (occurrence: CN)
  Receive Date: 20130926
  Receipt Date: 20130926
  Transmission Date: 20140515
  Serious: Yes (Other)
  Sender: FDA-Public Use
  Company Number: CN-PFIZER INC-2013269085

PATIENT
  Age: 38 Year
  Sex: Female
  Weight: 38 kg

DRUGS (2)
  1. DAUNOBLASTINA [Suspect]
     Indication: CHEMOTHERAPY
     Dosage: 60 MG, 1X/DAY
     Route: 041
     Dates: start: 20120210, end: 20120212
  2. CYTOSAR [Suspect]
     Indication: CHEMOTHERAPY
     Dosage: 250 MG, TWICE DAILY
     Route: 041
     Dates: start: 20120210, end: 20120216

REACTIONS (6)
  - Faecaloma [Unknown]
  - Gastrointestinal disorder [Unknown]
  - Folliculitis [Recovering/Resolving]
  - Anaemia [Unknown]
  - Thrombocytopenia [Unknown]
  - Leukopenia [Unknown]
